FAERS Safety Report 7786302-X (Version None)
Quarter: 2011Q3

REPORT INFORMATION
  Report Type: 
  Country: None (occurrence: None)
  Receive Date: 20110929
  Receipt Date: 20110921
  Transmission Date: 20111222
  Serious: Yes (Other)
  Sender: FDA-Public Use
  Company Number: PHHY2011BR85680

PATIENT
  Age: 59 Year
  Sex: Female

DRUGS (1)
  1. ZOMETA [Suspect]
     Indication: LUNG NEOPLASM MALIGNANT

REACTIONS (3)
  - EXPOSED BONE IN JAW [None]
  - PAIN [None]
  - OSTEONECROSIS OF JAW [None]
